FAERS Safety Report 5750224-6 (Version None)
Quarter: 2008Q2

REPORT INFORMATION
  Report Type: 
  Country: None (occurrence: None)
  Receive Date: 20080523
  Receipt Date: 20080523
  Transmission Date: 20081010
  Serious: Yes (Death, Hospitalization, Disabling, Other)
  Sender: FDA-Public Use
  Company Number: None

PATIENT
  Age: 61 Year
  Sex: Female
  Weight: 127.0072 kg

DRUGS (1)
  1. DIGITEK [Suspect]
     Indication: HEART RATE IRREGULAR
     Dosage: 0.125 MG 1 X DAILY
     Dates: start: 20071229, end: 20080102

REACTIONS (3)
  - CARDIAC FAILURE [None]
  - PHARMACEUTICAL PRODUCT COMPLAINT [None]
  - RESPIRATORY FAILURE [None]
